FAERS Safety Report 9014449 (Version 2)
Quarter: 2013Q1

REPORT INFORMATION
  Report Type: Spontaneous
  Country: US (occurrence: US)
  Receive Date: 20130115
  Receipt Date: 20130313
  Transmission Date: 20140127
  Serious: Yes (Hospitalization)
  Sender: FDA-Public Use
  Company Number: US-GLAXOSMITHKLINE-A0848990A

PATIENT
  Sex: Female
  Weight: 86.4 kg

DRUGS (1)
  1. AVANDIA [Suspect]
     Indication: DIABETES MELLITUS
     Dosage: 4MG PER DAY
     Route: 048
     Dates: start: 200301, end: 200401

REACTIONS (6)
  - Myelodysplastic syndrome [Not Recovered/Not Resolved]
  - Loss of consciousness [Unknown]
  - Cardiac failure congestive [Unknown]
  - Dyspnoea [Unknown]
  - Blood glucose decreased [Unknown]
  - Weight increased [Unknown]
